FAERS Safety Report 15259764 (Version 1)
Quarter: 2018Q3

REPORT INFORMATION
  Report Type: Spontaneous
  Country: FR (occurrence: FR)
  Receive Date: 20180809
  Receipt Date: 20180809
  Transmission Date: 20181010
  Serious: Yes (Hospitalization)
  Sender: FDA-Public Use
  Company Number: FR-TEVA-2018-FR-937035

PATIENT

DRUGS (3)
  1. KETOPROFEN. [Suspect]
     Active Substance: KETOPROFEN
     Indication: BACK PAIN
     Dosage: 200 MILLIGRAM DAILY;
     Route: 065
     Dates: start: 20180127, end: 20180130
  2. SINTROM [Interacting]
     Active Substance: ACENOCOUMAROL
     Dosage: ALTERNATING 1.5 DF DAILY/ 1.25DF EVERY OTHER DAY AT 8HPM ()
     Route: 048
     Dates: start: 1988
  3. SINTROM [Interacting]
     Active Substance: ACENOCOUMAROL
     Indication: THROMBOSIS PROPHYLAXIS
     Dosage: 1.25 DOSAGE FORMS DAILY;
     Route: 048
     Dates: start: 20180202

REACTIONS (3)
  - Faeces discoloured [Unknown]
  - International normalised ratio increased [Recovered/Resolved]
  - Labelled drug-drug interaction medication error [Recovered/Resolved]

NARRATIVE: CASE EVENT DATE: 20180127
